FAERS Safety Report 4588236-0 (Version None)
Quarter: 2005Q1

REPORT INFORMATION
  Report Type: 
  Country: None (occurrence: None)
  Receive Date: 20050221
  Receipt Date: 20050211
  Transmission Date: 20050727
  Serious: Yes (Disabling)
  Sender: FDA-Public Use
  Company Number: BR-ROCHE-395373

PATIENT
  Age: 25 Year
  Sex: Male
  Weight: 80 kg

DRUGS (1)
  1. RIVOTRIL [Suspect]
     Route: 048
     Dates: start: 20041115, end: 20050207

REACTIONS (5)
  - ABDOMINAL PAIN UPPER [None]
  - DEPRESSION [None]
  - FATIGUE [None]
  - HAEMATEMESIS [None]
  - SOMNOLENCE [None]
